FAERS Safety Report 5714392-4 (Version None)
Quarter: 2008Q2

REPORT INFORMATION
  Report Type: 
  Country: None (occurrence: None)
  Receive Date: 20080423
  Receipt Date: 20080416
  Transmission Date: 20081010
  Serious: Yes (Disabling)
  Sender: FDA-Public Use
  Company Number: PHHY2008JP01046

PATIENT
  Age: 69 Year
  Sex: Female

DRUGS (6)
  1. ZOMETA [Suspect]
     Indication: METASTASES TO BONE
     Dosage: 4 MG/DAY
     Route: 042
     Dates: start: 20060724, end: 20070709
  2. AREDIA [Suspect]
     Indication: METASTASES TO BONE
     Dosage: UNK, UNK
     Route: 042
     Dates: start: 20050301, end: 20060701
  3. ARIMIDEX [Concomitant]
     Indication: METASTASIS
     Dosage: 2 MG, UNK
     Route: 048
     Dates: start: 20040801
  4. ARIMIDEX [Concomitant]
     Dosage: 1 MG, UNK
     Route: 048
  5. TAXOL [Concomitant]
     Indication: METASTASES TO LUNG
     Dosage: 60 MG, UNK
     Route: 042
     Dates: start: 20050309, end: 20060701
  6. NOLVADEX [Concomitant]
     Indication: BREAST CANCER
     Dosage: 20 MG, UNK
     Route: 048
     Dates: start: 20010601, end: 20040701

REACTIONS (6)
  - MASTICATION DISORDER [None]
  - ORAL PAIN [None]
  - ORAL SURGERY [None]
  - OSTEOMYELITIS [None]
  - OSTEONECROSIS [None]
  - TOOTH EXTRACTION [None]
